FAERS Safety Report 22776725 (Version 2)
Quarter: 2023Q4

REPORT INFORMATION
  Report Type: Report from Study
  Country: DE (occurrence: DE)
  Receive Date: 20230802
  Receipt Date: 20231010
  Transmission Date: 20240110
  Serious: Yes (Death, Disabling, Congenital Anomaly, Other)
  Sender: FDA-Public Use
  Company Number: DE-SA-BI2016BI13338BI

PATIENT
  Weight: 0.056 kg

DRUGS (61)
  1. NICOTINE [Suspect]
     Active Substance: NICOTINE
     Indication: Foetal exposure during pregnancy
     Dosage: DOSE DESCRIPTION : FROM GESTATIONAL WEEK 0-14
     Route: 064
  2. ASPIRIN [Suspect]
     Active Substance: ASPIRIN
     Indication: Foetal exposure during pregnancy
     Dosage: DOSE DESCRIPTION : FROM GESTATIONAL WEEK 0-14
     Route: 064
  3. RAMIPRIL [Suspect]
     Active Substance: RAMIPRIL
     Indication: Foetal exposure during pregnancy
     Dosage: DOSE DESCRIPTION : 20 MG, QD  FROM GESTATIONAL WEEK 0-113+6
     Route: 064
  4. RAMIPRIL [Suspect]
     Active Substance: RAMIPRIL
     Dosage: 20 MG UNK FROM GESTATIONAL WEEK 0-113+6
     Route: 064
  5. RAMIPRIL [Suspect]
     Active Substance: RAMIPRIL
     Dosage: 20 MG UNK FROM GESTATIONAL WEEK 0-113+6
     Route: 064
     Dates: start: 20111214, end: 20120320
  6. ENOXAPARIN SODIUM [Suspect]
     Active Substance: ENOXAPARIN SODIUM
     Indication: Pulmonary embolism
  7. ENOXAPARIN SODIUM [Suspect]
     Active Substance: ENOXAPARIN SODIUM
     Dosage: 200 MG/D (2X100)
     Route: 064
     Dates: start: 20111214, end: 20120320
  8. HYDROXYCHLOROQUINE SULFATE [Suspect]
     Active Substance: HYDROXYCHLOROQUINE SULFATE
     Indication: Foetal exposure during pregnancy
     Dosage: DOSE DESCRIPTION : UNK UNK,UNK
     Route: 064
  9. HYDROXYCHLOROQUINE SULFATE [Suspect]
     Active Substance: HYDROXYCHLOROQUINE SULFATE
     Dosage: DOSE DESCRIPTION : UNK UNK,UNK
     Route: 064
  10. PREDNISOLONE [Suspect]
     Active Substance: PREDNISOLONE
     Indication: Foetal exposure during pregnancy
     Dosage: DOSE DESCRIPTION : UNK UNK,UNK
     Route: 064
  11. PREDNISOLONE [Suspect]
     Active Substance: PREDNISOLONE
     Dosage: DOSE DESCRIPTION : FROM GESTATIONAL WEEK 0-14
     Route: 064
  12. PREDNISOLONE [Suspect]
     Active Substance: PREDNISOLONE
     Dosage: FROM GESTATIONAL WEEK 0-14
     Route: 064
  13. PREDNISOLONE [Suspect]
     Active Substance: PREDNISOLONE
     Dosage: FROM GESTATIONAL WEEK 0-14
     Route: 064
     Dates: start: 20111214, end: 20120320
  14. TORSEMIDE [Suspect]
     Active Substance: TORSEMIDE
     Indication: Foetal exposure during pregnancy
     Dosage: DOSE DESCRIPTION : UNK UNK,UNK
     Route: 064
  15. TORSEMIDE [Suspect]
     Active Substance: TORSEMIDE
     Dosage: FROM GESTATIONAL WEEK 0-14
     Route: 064
  16. TORSEMIDE [Suspect]
     Active Substance: TORSEMIDE
     Dosage: FROM GESTATIONAL WEEK 0-14
     Route: 064
     Dates: start: 20111214, end: 20120320
  17. ALBUTEROL SULFATE [Suspect]
     Active Substance: ALBUTEROL SULFATE
     Indication: Foetal exposure during pregnancy
     Dosage: DOSE DESCRIPTION : UNK UNK,UNK
     Route: 064
  18. ALBUTEROL SULFATE [Suspect]
     Active Substance: ALBUTEROL SULFATE
     Dosage: DOSE DESCRIPTION : UNK UNK,UNK
     Route: 065
  19. EZETIMIBE [Suspect]
     Active Substance: EZETIMIBE
     Indication: Foetal exposure during pregnancy
     Dosage: DOSE DESCRIPTION : FROM GESTATIONAL WEEK 0-14
     Route: 064
  20. EZETIMIBE [Suspect]
     Active Substance: EZETIMIBE
     Dosage: FROM GESTATIONAL WEEK 0-14
     Route: 064
  21. SIMVASTATIN [Suspect]
     Active Substance: SIMVASTATIN
     Indication: Foetal exposure during pregnancy
     Dosage: DOSE DESCRIPTION : FROM GESTATIONAL WEEK 0-14
     Route: 064
  22. SIMVASTATIN [Suspect]
     Active Substance: SIMVASTATIN
     Dosage: DOSE DESCRIPTION : UNK UNK,UNK
     Route: 064
  23. SIMVASTATIN [Suspect]
     Active Substance: SIMVASTATIN
     Dosage: FROM GESTATIONAL WEEK 0-14
     Route: 064
  24. SIMVASTATIN [Suspect]
     Active Substance: SIMVASTATIN
     Dosage: FROM GESTATIONAL WEEK 0-14
     Route: 064
  25. SIMVASTATIN [Suspect]
     Active Substance: SIMVASTATIN
     Dosage: FROM GESTATIONAL WEEK 0-14
     Route: 064
     Dates: start: 20111214, end: 20120320
  26. TACROLIMUS [Suspect]
     Active Substance: TACROLIMUS
     Indication: Systemic lupus erythematosus
     Dosage: DOSE DESCRIPTION : FROM GESTATIONAL WEEK 0-14
     Route: 064
  27. TACROLIMUS [Suspect]
     Active Substance: TACROLIMUS
     Indication: Embolism venous
     Dosage: FROM GESTATIONAL WEEK 0-14
     Route: 064
     Dates: start: 20111214, end: 20120320
  28. TACROLIMUS [Suspect]
     Active Substance: TACROLIMUS
     Indication: Foetal exposure during pregnancy
  29. ALISKIREN [Suspect]
     Active Substance: ALISKIREN
     Indication: Foetal exposure during pregnancy
     Route: 064
  30. ALISKIREN [Suspect]
     Active Substance: ALISKIREN
     Dosage: 300 [MG/D]; 0-4.6 GESTATIONAL WEEK
     Route: 064
     Dates: start: 20111214, end: 20120117
  31. XARELTO [Suspect]
     Active Substance: RIVAROXABAN
     Indication: Foetal exposure during pregnancy
     Dosage: FROM GESTATIONAL WEEK 0-5
     Route: 064
  32. XARELTO [Suspect]
     Active Substance: RIVAROXABAN
     Dosage: FROM GESTATIONAL WEEK 0-5
     Route: 064
  33. XARELTO [Suspect]
     Active Substance: RIVAROXABAN
     Dosage: FROM GESTATIONAL WEEK 0-5
     Route: 064
  34. DALTEPARIN SODIUM [Suspect]
     Active Substance: DALTEPARIN SODIUM
     Dosage: DOSE DESCRIPTION : UNK
     Route: 064
  35. RITUXIMAB [Suspect]
     Active Substance: RITUXIMAB
     Indication: Systemic lupus erythematosus
     Route: 064
  36. RITUXIMAB [Suspect]
     Active Substance: RITUXIMAB
     Dosage: UNK, LAST TIME IN DECEMBER 2011: PRE OR PERICONCEPTIONAL
     Route: 064
  37. RITUXIMAB [Suspect]
     Active Substance: RITUXIMAB
     Dosage: LAST TIME IN DECEMBER 2011: PRE OR PERICONCEPTIONAL
     Route: 064
     Dates: end: 201112
  38. ENOXAPARIN SODIUM [Suspect]
     Active Substance: ENOXAPARIN SODIUM
     Dosage: DOSE DESCRIPTION : FROM GESTATIONAL WEEK 0-14
     Route: 064
  39. PANTOPRAZOLE [Suspect]
     Active Substance: PANTOPRAZOLE
     Indication: Foetal exposure during pregnancy
     Dosage: DOSE DESCRIPTION : FROM GESTATIONAL WEEK 0-14
     Route: 064
  40. METAMIZOLE SODIUM [Suspect]
     Active Substance: METAMIZOLE SODIUM
     Indication: Foetal exposure during pregnancy
     Dosage: DOSE DESCRIPTION : FROM GESTATIONAL WEEK 0-14
     Route: 064
  41. RIVAROXABAN [Suspect]
     Active Substance: RIVAROXABAN
     Indication: Foetal exposure during pregnancy
     Dosage: DOSE DESCRIPTION : FROM GESTATIONAL WEEK 0-5
     Route: 064
  42. ALBUTEROL [Suspect]
     Active Substance: ALBUTEROL
     Indication: Foetal exposure during pregnancy
     Dosage: FROM GESTATIONAL WEEK 0-14
     Route: 064
  43. ALBUTEROL [Suspect]
     Active Substance: ALBUTEROL
     Dosage: FROM GESTATIONAL WEEK 0-14
     Route: 064
  44. ALBUTEROL [Suspect]
     Active Substance: ALBUTEROL
     Dosage: FROM GESTATIONAL WEEK 0-14
     Route: 064
  45. HYDROXYCHLOROQUINE [Suspect]
     Active Substance: HYDROXYCHLOROQUINE
     Indication: Foetal exposure during pregnancy
     Dosage: FROM GESTATIONAL WEEK 0-14
     Route: 064
  46. HYDROXYCHLOROQUINE [Suspect]
     Active Substance: HYDROXYCHLOROQUINE
     Dosage: FROM GESTATIONAL WEEK 0-14
     Route: 064
     Dates: end: 20120320
  47. HYDROXYCHLOROQUINE [Suspect]
     Active Substance: HYDROXYCHLOROQUINE
     Dosage: FROM GESTATIONAL WEEK 0-14
     Route: 064
     Dates: start: 20111214, end: 20120320
  48. UNSPECIFIED INGREDIENT [Suspect]
     Active Substance: UNSPECIFIED INGREDIENT
     Dosage: UNK UNK,UNK
     Route: 064
  49. UNSPECIFIED INGREDIENT [Suspect]
     Active Substance: UNSPECIFIED INGREDIENT
     Dosage: UNK UNK,UNK
     Route: 064
  50. UNSPECIFIED INGREDIENT [Suspect]
     Active Substance: UNSPECIFIED INGREDIENT
     Dosage: UNK UNK,UNK
     Route: 064
  51. EZETIMIBE [Suspect]
     Active Substance: EZETIMIBE
     Indication: Foetal exposure during pregnancy
     Dosage: FROM GESTATIONAL WEEK 0-14
     Route: 064
  52. EZETIMIBE [Suspect]
     Active Substance: EZETIMIBE
     Route: 064
  53. EZETIMIBE [Suspect]
     Active Substance: EZETIMIBE
     Dosage: FROM GESTATIONAL WEEK 0-14
     Route: 064
  54. METAMIZOLE [Suspect]
     Active Substance: METAMIZOLE
     Indication: Foetal exposure during pregnancy
     Dosage: FROM GESTATIONAL WEEK 0-14
     Route: 064
  55. METAMIZOLE [Suspect]
     Active Substance: METAMIZOLE
     Dosage: FROM GESTATIONAL WEEK 0-14
     Route: 064
  56. METAMIZOLE [Suspect]
     Active Substance: METAMIZOLE
     Dosage: FROM GESTATIONAL WEEK 0-14
     Route: 064
  57. METAMIZOLE [Suspect]
     Active Substance: METAMIZOLE
     Indication: Foetal exposure during pregnancy
     Dosage: UNK; TRIMESTER: FIRST; PROBABLY ONLY IN HOSPITAL IN WEEK 5??FROM GESTATIONAL WEEK 0-14
     Route: 064
  58. METAMIZOLE [Suspect]
     Active Substance: METAMIZOLE
     Dosage: UNK; TRIMESTER: FIRST; PROBABLY ONLY IN HOSPITAL IN WEEK 5
     Route: 064
  59. CYTOTEC [Concomitant]
     Active Substance: MISOPROSTOL
     Indication: Abortion induced
     Dosage: UNK; 13.6 GESTATIONAL WEEK
     Route: 064
     Dates: start: 20120320, end: 20120320
  60. CYCLOPHOSPHAMIDE [Concomitant]
     Active Substance: CYCLOPHOSPHAMIDE
     Indication: Systemic lupus erythematosus
     Dosage: 3000 [MG CUMULATIVE]; PRECONCEPTIONAL
     Route: 064
     Dates: start: 201104, end: 201108
  61. MIFEPRISTONE [Concomitant]
     Active Substance: MIFEPRISTONE
     Indication: Abortion induced
     Dosage: UNK; 13.6 GESTATIONAL WEEK
     Route: 064
     Dates: start: 20120320, end: 20120320

REACTIONS (13)
  - Truncus arteriosus persistent [Fatal]
  - Ventricular septal defect [Fatal]
  - Congenital cardiovascular anomaly [Fatal]
  - Heart disease congenital [Fatal]
  - Cardiac septal defect [Fatal]
  - Abortion induced [Fatal]
  - Foetal exposure during pregnancy [Fatal]
  - Truncus arteriosus persistent [Fatal]
  - Congenital cardiovascular anomaly [Fatal]
  - Cardiac septal defect [Fatal]
  - Low birth weight baby [Unknown]
  - Premature baby [Unknown]
  - Foetal exposure during pregnancy [Unknown]
